FAERS Safety Report 13567435 (Version 5)
Quarter: 2017Q3

REPORT INFORMATION
  Report Type: Spontaneous
  Country: US (occurrence: US)
  Receive Date: 20170522
  Receipt Date: 20170825
  Transmission Date: 20171127
  Serious: Yes (Other)
  Sender: FDA-Public Use
  Company Number: US-PFIZER INC-2017217523

PATIENT
  Age: 65 Year
  Sex: Female

DRUGS (1)
  1. XELJANZ [Suspect]
     Active Substance: TOFACITINIB CITRATE
     Indication: RHEUMATOID ARTHRITIS
     Dosage: 5 MG, UNK
     Dates: end: 201707

REACTIONS (10)
  - Skin hypopigmentation [Unknown]
  - Lip swelling [Unknown]
  - Arthralgia [Unknown]
  - Muscle spasms [Unknown]
  - Cheilosis [Unknown]
  - Tuberculosis [Unknown]
  - Joint range of motion decreased [Unknown]
  - Joint crepitation [Unknown]
  - Joint swelling [Unknown]
  - Blood pressure increased [Unknown]
